FAERS Safety Report 8937214 (Version 1)
Quarter: 2012Q4

REPORT INFORMATION
  Report Type: Spontaneous
  Country: US (occurrence: None)
  Receive Date: 20121128
  Receipt Date: 20121128
  Transmission Date: 20130627
  Serious: No
  Sender: FDA-Public Use
  Company Number: None

PATIENT
  Age: 39 Year
  Sex: Female
  Weight: 86.18 kg

DRUGS (1)
  1. HYDROXYCHLOROQUINE [Suspect]
     Dosage: 200mg  Twice daily  po
     Route: 048

REACTIONS (2)
  - Tachycardia [None]
  - Dyspnoea [None]
